FAERS Safety Report 15540841 (Version 1)
Quarter: 2018Q4

REPORT INFORMATION
  Report Type: Spontaneous
  Country: GB (occurrence: GB)
  Receive Date: 20181023
  Receipt Date: 20181023
  Transmission Date: 20190205
  Serious: Yes (Other)
  Sender: FDA-Public Use
  Company Number: PHHY2018GB128646

PATIENT
  Sex: Female

DRUGS (26)
  1. TRASTUZUMAB. [Suspect]
     Active Substance: TRASTUZUMAB
     Indication: HER-2 POSITIVE BREAST CANCER
     Dosage: 300 MG, Q3W (DOSE MODIFIED)
     Route: 042
     Dates: start: 20150629, end: 20151102
  2. TRASTUZUMAB EMTANSINE [Suspect]
     Active Substance: ADO-TRASTUZUMAB EMTANSINE
     Indication: HER-2 POSITIVE BREAST CANCER
     Dosage: 140 MG, Q3W
     Route: 042
     Dates: start: 20160215, end: 20160215
  3. PERTUZUMAB. [Suspect]
     Active Substance: PERTUZUMAB
     Indication: HER-2 POSITIVE BREAST CANCER
     Dosage: 840 MG, UNK
     Route: 042
  4. VINORELBINE [Suspect]
     Active Substance: VINORELBINE\VINORELBINE TARTRATE
     Dosage: 60 MG, UNK
     Route: 048
  5. TAZOCIN [Concomitant]
     Active Substance: PIPERACILLIN SODIUM\TAZOBACTAM SODIUM
     Indication: LOWER RESPIRATORY TRACT INFECTION
     Dosage: UNK
     Route: 042
  6. TRASTUZUMAB. [Suspect]
     Active Substance: TRASTUZUMAB
     Dosage: 350 MG, UNK (LOADING DOSE)
     Route: 042
  7. ERIBULIN MESYLATE [Suspect]
     Active Substance: ERIBULIN MESYLATE
     Indication: HER-2 POSITIVE BREAST CANCER
     Dosage: 1.5 MG, Q3W
     Route: 042
     Dates: start: 20160411, end: 20160624
  8. FOLIC ACID. [Concomitant]
     Active Substance: FOLIC ACID
     Indication: BLOOD FOLATE DECREASED
     Dosage: 5 MG, QD
     Route: 048
     Dates: start: 20150828
  9. FILGRASTIM [Concomitant]
     Active Substance: FILGRASTIM
     Indication: PRODUCT USED FOR UNKNOWN INDICATION
     Dosage: 300 UG, UNK (EVERY DAY FOR 3 DAYS STARTING ON DAYS 3 AND 11)
     Route: 058
  10. GENTAMICIN. [Concomitant]
     Active Substance: GENTAMICIN
     Indication: LOWER RESPIRATORY TRACT INFECTION
     Dosage: UNK
     Route: 042
  11. TRASTUZUMAB EMTANSINE [Suspect]
     Active Substance: ADO-TRASTUZUMAB EMTANSINE
     Dosage: 172 MG, Q3W
     Route: 042
     Dates: start: 20151201
  12. MUPIROCIN. [Concomitant]
     Active Substance: MUPIROCIN
     Indication: PROPHYLAXIS
     Dosage: 6 %, QD
     Route: 061
     Dates: start: 20160620, end: 20160624
  13. CIPROFLOXACIN. [Concomitant]
     Active Substance: CIPROFLOXACIN
     Indication: PRODUCT USED FOR UNKNOWN INDICATION
     Dosage: 1000 MG, QD
     Route: 048
     Dates: start: 20151218, end: 20151225
  14. CAPECITABINE. [Suspect]
     Active Substance: CAPECITABINE
     Indication: HER-2 POSITIVE BREAST CANCER
     Dosage: 3000 MG, QD
     Route: 048
     Dates: start: 20170210, end: 20170728
  15. TRASTUZUMAB. [Suspect]
     Active Substance: TRASTUZUMAB
     Dosage: 1 DF, Q3W (DOSE REDUCED)
     Route: 042
  16. LOPERAMIDE [Concomitant]
     Active Substance: LOPERAMIDE
     Indication: DIARRHOEA
     Dosage: 2 MG, UNK
     Route: 048
     Dates: start: 20170901, end: 20171124
  17. AMLODIPINE [Concomitant]
     Active Substance: AMLODIPINE BESYLATE
     Indication: PRODUCT USED FOR UNKNOWN INDICATION
     Dosage: 10 MG, UNK
     Route: 048
  18. NERATINIB [Concomitant]
     Active Substance: NERATINIB
     Indication: PRODUCT USED FOR UNKNOWN INDICATION
     Dosage: 40 MG, QD
     Route: 048
     Dates: start: 20170901, end: 20180314
  19. DOCETAXEL. [Suspect]
     Active Substance: DOCETAXEL
     Dosage: 108 MG, Q3W (DOSE MODIFIED)
     Route: 042
     Dates: start: 20150602, end: 20150602
  20. DOCETAXEL. [Suspect]
     Active Substance: DOCETAXEL
     Indication: PRODUCT USED FOR UNKNOWN INDICATION
     Dosage: 86 MG, Q3W (DOSE DISCONTINUED)
     Route: 042
     Dates: start: 20150629, end: 20150720
  21. DOMPERIDONE [Concomitant]
     Active Substance: DOMPERIDONE
     Indication: PRODUCT USED FOR UNKNOWN INDICATION
     Dosage: 30 MG, QD
     Route: 048
     Dates: start: 20160406, end: 20160421
  22. MEROPENEM. [Concomitant]
     Active Substance: MEROPENEM
     Indication: LOWER RESPIRATORY TRACT INFECTION
     Dosage: UNK
     Route: 042
  23. VINORELBINE [Suspect]
     Active Substance: VINORELBINE\VINORELBINE TARTRATE
     Indication: PRODUCT USED FOR UNKNOWN INDICATION
     Dosage: 60 MG, UNK
     Route: 048
  24. PERTUZUMAB. [Suspect]
     Active Substance: PERTUZUMAB
     Dosage: 420 MG, Q3W (TARGETED THERAPY)
     Route: 042
     Dates: start: 20150622
  25. CO-AMOXICLAV [Concomitant]
     Active Substance: AMOXICILLIN\CLAVULANATE POTASSIUM
     Indication: LOWER RESPIRATORY TRACT INFECTION
     Dosage: 1875 MG, QD
     Route: 048
     Dates: start: 20170222, end: 20170228
  26. FILGRASTIM [Concomitant]
     Active Substance: FILGRASTIM
     Dosage: 300 UG, QD
     Route: 058
     Dates: start: 20150725, end: 20150730

REACTIONS (25)
  - Throat irritation [Not Recovered/Not Resolved]
  - Neuropathy peripheral [Recovering/Resolving]
  - Pyrexia [Recovered/Resolved]
  - Weight decreased [Not Recovered/Not Resolved]
  - Folate deficiency [Recovered/Resolved]
  - Thrombocytopenia [Not Recovered/Not Resolved]
  - Alopecia [Not Recovered/Not Resolved]
  - Neutropenia [Not Recovered/Not Resolved]
  - Dysphonia [Recovering/Resolving]
  - Hypoaesthesia [Unknown]
  - Pyrexia [Recovered/Resolved]
  - Tremor [Recovered/Resolved]
  - Mucosal inflammation [Recovered/Resolved]
  - Pancytopenia [Not Recovered/Not Resolved]
  - Lethargy [Not Recovered/Not Resolved]
  - Rash pruritic [Recovered/Resolved]
  - Fatigue [Recovered/Resolved]
  - Decreased appetite [Not Recovered/Not Resolved]
  - Odynophagia [Not Recovered/Not Resolved]
  - Colitis [Not Recovered/Not Resolved]
  - Alopecia [Not Recovered/Not Resolved]
  - Diarrhoea [Recovered/Resolved]
  - Dyspepsia [Recovered/Resolved]
  - Cough [Recovered/Resolved]
  - Palpitations [Unknown]

NARRATIVE: CASE EVENT DATE: 20150629
